FAERS Safety Report 12013345 (Version 2)
Quarter: 2016Q3

REPORT INFORMATION
  Report Type: Spontaneous
  Country: CN (occurrence: CN)
  Receive Date: 20160205
  Receipt Date: 20160721
  Transmission Date: 20161109
  Serious: Yes (Hospitalization)
  Sender: FDA-Public Use
  Company Number: CN-ASTRAZENECA-2016SE10528

PATIENT
  Age: 77 Year
  Sex: Female

DRUGS (15)
  1. BETALOC ZOK [Suspect]
     Active Substance: METOPROLOL SUCCINATE
     Route: 048
     Dates: start: 2013
  2. PROPRANLOLUM [Concomitant]
     Dosage: 1 TO 2 TABLETS WHEN SHE FELT UNCOMFORTABLE
     Route: 048
  3. PLENDIL [Suspect]
     Active Substance: FELODIPINE
     Route: 048
  4. BETALOC [Suspect]
     Active Substance: METOPROLOL TARTRATE
     Indication: HYPERTENSION
     Route: 048
     Dates: end: 2013
  5. PROPAFENONE. [Concomitant]
     Active Substance: PROPAFENONE
     Dates: start: 201509
  6. BETALOC [Suspect]
     Active Substance: METOPROLOL TARTRATE
     Indication: MYOCARDIAL ISCHAEMIA
     Route: 048
     Dates: end: 2013
  7. PROPRANLOLUM [Concomitant]
     Route: 048
     Dates: start: 1995
  8. BETALOC ZOK [Suspect]
     Active Substance: METOPROLOL SUCCINATE
     Dosage: 1/2 TABLET DAILY
     Route: 048
  9. BETALOC ZOK [Suspect]
     Active Substance: METOPROLOL SUCCINATE
     Dosage: 3/4 TABLET DAILY
     Route: 048
  10. BETALOC ZOK [Suspect]
     Active Substance: METOPROLOL SUCCINATE
     Route: 048
  11. PROPAFENONE. [Concomitant]
     Active Substance: PROPAFENONE
     Dates: start: 201507
  12. PROPRANLOLUM [Concomitant]
     Route: 048
  13. BETALOC ZOK [Suspect]
     Active Substance: METOPROLOL SUCCINATE
     Dosage: 3/4 TABLET DAILY
     Route: 048
  14. BETALOC ZOK [Suspect]
     Active Substance: METOPROLOL SUCCINATE
     Dosage: 1/2 TABLET DAILY
     Route: 048
  15. BETALOC [Suspect]
     Active Substance: METOPROLOL TARTRATE
     Indication: ARRHYTHMIA
     Route: 048
     Dates: end: 2013

REACTIONS (12)
  - Rhinorrhoea [Not Recovered/Not Resolved]
  - Crying [Not Recovered/Not Resolved]
  - Off label use [Unknown]
  - Unevaluable event [Unknown]
  - Fatigue [Recovering/Resolving]
  - Feeling abnormal [Not Recovered/Not Resolved]
  - Extrasystoles [Unknown]
  - Cardiac function test abnormal [Unknown]
  - Disturbance in attention [Recovering/Resolving]
  - Asthenia [Recovering/Resolving]
  - Arrhythmia [Unknown]
  - Urinary tract infection [Unknown]

NARRATIVE: CASE EVENT DATE: 201501
